FAERS Safety Report 15005348 (Version 1)
Quarter: 2018Q2

REPORT INFORMATION
  Report Type: Spontaneous
  Country: ES (occurrence: ES)
  Receive Date: 20180613
  Receipt Date: 20180613
  Transmission Date: 20180711
  Serious: Yes (Other)
  Sender: FDA-Public Use
  Company Number: ES-BAYER-2018-109824

PATIENT
  Age: 50 Year
  Sex: Male

DRUGS (2)
  1. XOFIGO [Suspect]
     Active Substance: RADIUM RA-223 DICHLORIDE
     Indication: PROSTATE CANCER METASTATIC
     Dosage: 1 DF, Q1MON
     Dates: start: 201707, end: 201712
  2. MORPHINE [Concomitant]
     Active Substance: MORPHINE
     Indication: PAIN IN EXTREMITY

REACTIONS (9)
  - Pain [Recovered/Resolved]
  - Prostate cancer stage IV [None]
  - Diarrhoea [Recovered/Resolved]
  - White blood cell count increased [None]
  - Prostate cancer metastatic [None]
  - Haemoglobin decreased [Unknown]
  - Haematuria [Unknown]
  - Prostatic specific antigen increased [None]
  - Pulmonary embolism [None]

NARRATIVE: CASE EVENT DATE: 201707
